FAERS Safety Report 4411453-7 (Version None)
Quarter: 2004Q2

REPORT INFORMATION
  Report Type: 
  Country: None (occurrence: None)
  Receive Date: 20040630
  Receipt Date: 20040524
  Transmission Date: 20050107
  Serious: No
  Sender: FDA-Public Use
  Company Number: 04P-163-0261848-00

PATIENT
  Sex: Female

DRUGS (6)
  1. HUMIRA [Suspect]
     Indication: RHEUMATOID ARTHRITIS
     Dosage: 40 MG, 1 IN 2 WK, SUBCUTANEOUS
     Route: 058
     Dates: start: 20040501
  2. PANTOPRAZOLE [Concomitant]
  3. PREDNISONE [Concomitant]
  4. IBUPROFEN [Concomitant]
  5. ALBUTEROL SULFATE [Concomitant]
  6. SUMATRIPTAN SUCCINATE [Concomitant]

REACTIONS (1)
  - EAR INFECTION [None]
